FAERS Safety Report 9341570 (Version 1)
Quarter: 2013Q2

REPORT INFORMATION
  Report Type: Spontaneous
  Country: US (occurrence: US)
  Receive Date: 20130611
  Receipt Date: 20130611
  Transmission Date: 20140414
  Serious: Yes (Other)
  Sender: FDA-Public Use
  Company Number: PHEH2013US012339

PATIENT
  Sex: Female

DRUGS (8)
  1. DIOVAN [Suspect]
     Dosage: 160 MG, QD
     Route: 048
  2. ZYDONE [Concomitant]
  3. CELEBREX [Concomitant]
  4. TENORMIN [Concomitant]
  5. METHOTREXATE [Concomitant]
  6. FOLIC ACID [Concomitant]
  7. REMICADE [Concomitant]
  8. ASPIRIN [Concomitant]
     Dosage: UNK UKN, BID

REACTIONS (4)
  - Spinal osteoarthritis [Unknown]
  - Back pain [Unknown]
  - Rheumatoid arthritis [Unknown]
  - Concomitant disease aggravated [Unknown]
